FAERS Safety Report 9437986 (Version 1)
Quarter: 2013Q3

REPORT INFORMATION
  Report Type: Spontaneous
  Country: US (occurrence: US)
  Receive Date: 20130802
  Receipt Date: 20130802
  Transmission Date: 20140515
  Serious: No
  Sender: FDA-Public Use
  Company Number: US-BRISTOL-MYERS SQUIBB COMPANY-18808519

PATIENT
  Sex: Female

DRUGS (2)
  1. COUMADIN [Suspect]
  2. ASPARAGUS [Interacting]
     Dosage: PROBABALY MORE THAN 1 CUP

REACTIONS (2)
  - Food interaction [Unknown]
  - International normalised ratio abnormal [Unknown]
